FAERS Safety Report 6853509-5 (Version None)
Quarter: 2010Q3

REPORT INFORMATION
  Report Type: 
  Country: None (occurrence: None)
  Receive Date: 20100717
  Receipt Date: 20071211
  Transmission Date: 20110219
  Serious: No
  Sender: FDA-Public Use
  Company Number: US-PFIZER INC-2007104591

PATIENT
  Sex: Male
  Weight: 100 kg

DRUGS (7)
  1. CHANTIX [Suspect]
     Indication: SMOKING CESSATION THERAPY
     Dates: start: 20060101, end: 20071101
  2. HYDRALAZINE HCL [Concomitant]
  3. ATENOLOL [Concomitant]
  4. FLUOXETINE HCL [Concomitant]
  5. LASIX [Concomitant]
  6. POTASSIUM CHLORIDE [Concomitant]
  7. NABUMETONE [Concomitant]

REACTIONS (1)
  - VOMITING [None]
